FAERS Safety Report 5162377-1 (Version None)
Quarter: 2006Q4

REPORT INFORMATION
  Report Type: 
  Country: None (occurrence: None)
  Receive Date: 20061127
  Receipt Date: 20061127
  Transmission Date: 20070319
  Serious: Yes (Life-Threatening, Hospitalization, Disabling, Other)
  Sender: FDA-Public Use
  Company Number: None

PATIENT
  Age: 27 Year
  Sex: Female
  Weight: 90.7194 kg

DRUGS (1)
  1. ORTHO EVRA [Suspect]
     Indication: CONTRACEPTION
     Dosage: 1 PATCH PER WEEK TRANSDERMAL
     Route: 062
     Dates: start: 20030701, end: 20051017

REACTIONS (5)
  - LUNG DISORDER [None]
  - PULMONARY EMBOLISM [None]
  - RESPIRATORY TRACT IRRITATION [None]
  - THROMBOSIS [None]
  - UNEVALUABLE EVENT [None]
